FAERS Safety Report 12565075 (Version 1)
Quarter: 2016Q3

REPORT INFORMATION
  Report Type: Spontaneous
  Country: US (occurrence: None)
  Receive Date: 20160715
  Receipt Date: 20160715
  Transmission Date: 20161109
  Serious: Yes (Hospitalization)
  Sender: FDA-Public Use
  Company Number: None

PATIENT
  Age: 75 Year
  Sex: Male
  Weight: 63.05 kg

DRUGS (19)
  1. VITAMIN C [Concomitant]
     Active Substance: ASCORBIC ACID
  2. TUMERIC [Concomitant]
     Active Substance: TURMERIC
  3. MULTIVITAMIN [Concomitant]
     Active Substance: VITAMINS
  4. TRADJENTA [Suspect]
     Active Substance: LINAGLIPTIN
     Indication: DIABETES MELLITUS
     Dosage: 240 TABLET(S) IN THE MORNING TAKEN BY MOUTH
     Route: 048
     Dates: start: 20150901, end: 20160401
  5. TESTOSTERONE CYP [Concomitant]
     Active Substance: TESTOSTERONE CYPIONATE
  6. LOSARTAN. [Concomitant]
     Active Substance: LOSARTAN
  7. GLIMEPIRIDE. [Concomitant]
     Active Substance: GLIMEPIRIDE
  8. MELATONIN [Concomitant]
     Active Substance: MELATONIN
  9. LATANAPROST [Concomitant]
     Active Substance: LATANOPROST
  10. GIAI ADRENAL HEALTH [Concomitant]
  11. METHYL PROTECT [Concomitant]
  12. ARMOUR [Concomitant]
  13. NUERONTIN [Concomitant]
  14. TIMOLOL. [Concomitant]
     Active Substance: TIMOLOL
  15. DORZOLAMIDE [Concomitant]
     Active Substance: DORZOLAMIDE
  16. VITAMIN D [Concomitant]
     Active Substance: CHOLECALCIFEROL
  17. 7-KETO DHEA [Concomitant]
  18. ELAVIL [Concomitant]
     Active Substance: AMITRIPTYLINE HYDROCHLORIDE
  19. CYTOMEL [Concomitant]
     Active Substance: LIOTHYRONINE SODIUM

REACTIONS (1)
  - Pancreatic carcinoma [None]

NARRATIVE: CASE EVENT DATE: 20160327
